FAERS Safety Report 7102168-5 (Version None)
Quarter: 2010Q4

REPORT INFORMATION
  Report Type: 
  Country: None (occurrence: None)
  Receive Date: 20101115
  Receipt Date: 20090805
  Transmission Date: 20110411
  Serious: No
  Sender: FDA-Public Use
  Company Number: US-BIOGENIDEC-2009BI024681

PATIENT
  Age: 64 Year
  Sex: Female

DRUGS (2)
  1. TYSABRI [Suspect]
     Indication: MULTIPLE SCLEROSIS
     Route: 042
     Dates: start: 20090306
  2. AVONEX [Concomitant]
     Route: 030

REACTIONS (8)
  - AGEUSIA [None]
  - ANOSMIA [None]
  - DEAFNESS [None]
  - GAIT DISTURBANCE [None]
  - HALLUCINATION [None]
  - MENTAL IMPAIRMENT [None]
  - MUSCULAR WEAKNESS [None]
  - POOR VENOUS ACCESS [None]
